FAERS Safety Report 11117469 (Version 2)
Quarter: 2021Q2

REPORT INFORMATION
  Report Type: Spontaneous
  Country: US (occurrence: US)
  Receive Date: 20150516
  Receipt Date: 20210427
  Transmission Date: 20210716
  Serious: Yes (Other)
  Sender: FDA-Public Use
  Company Number: US-AUROBINDO-AUR-APL-2015-04290

PATIENT
  Age: 47 Year
  Sex: Male

DRUGS (2)
  1. MODAFINIL. [Suspect]
     Active Substance: MODAFINIL
     Dosage: 200 MG, UNK
     Route: 065
  2. MODAFINIL. [Suspect]
     Active Substance: MODAFINIL
     Indication: INTERMITTENT EXPLOSIVE DISORDER
     Dosage: 100 MG, UNK
     Route: 065

REACTIONS (5)
  - Intentional self-injury [Recovered/Resolved]
  - Aggression [Recovered/Resolved]
  - Condition aggravated [Recovered/Resolved]
  - Behaviour disorder [Recovered/Resolved]
  - Product use in unapproved indication [Unknown]
